FAERS Safety Report 8791985 (Version 1)
Quarter: 2012Q4

REPORT INFORMATION
  Report Type: 
  Country: US (occurrence: US)
  Receive Date: 20120918
  Receipt Date: 20120918
  Transmission Date: 20130627
  Serious: No
  Sender: FDA-Public Use
  Company Number: US-PFIZER INC-2012226811

PATIENT
  Age: 85 Year
  Sex: Female
  Weight: 61.22 kg

DRUGS (4)
  1. ZYVOX [Suspect]
     Indication: CYSTITIS
     Dosage: 600 mg, 2x/day
     Route: 048
     Dates: start: 20120911, end: 20120912
  2. NEXIUM [Concomitant]
     Indication: GASTROOESOPHAGEAL REFLUX DISEASE
     Dosage: 40 mg, 1x/day
  3. TROSPIUM CHLORIDE [Concomitant]
     Indication: POLLAKIURIA
     Dosage: 20 mg, 1x/day
  4. LIPITOR [Concomitant]
     Indication: BLOOD CHOLESTEROL ABNORMAL
     Dosage: 20 mg, 1x/day

REACTIONS (6)
  - Palpitations [Recovered/Resolved]
  - Tremor [Recovered/Resolved]
  - Nausea [Recovered/Resolved]
  - Dizziness [Not Recovered/Not Resolved]
  - Dyspepsia [Recovered/Resolved]
  - Vomiting [Recovered/Resolved]
